FAERS Safety Report 4943829-3 (Version None)
Quarter: 2006Q1

REPORT INFORMATION
  Report Type: 
  Country: None (occurrence: None)
  Receive Date: 20060310
  Receipt Date: 20060213
  Transmission Date: 20060701
  Serious: Yes (Other)
  Sender: FDA-Public Use
  Company Number: 2006020999

PATIENT
  Age: 42 Year
  Sex: Male

DRUGS (8)
  1. NICORETTE [Suspect]
     Indication: SMOKING CESSATION THERAPY
     Dosage: 15 MG DAILY, TRANSDERMAL
     Route: 062
     Dates: start: 20060130, end: 20060208
  2. TOPIRAMATE [Concomitant]
  3. ESOMEPRAZOLE [Concomitant]
  4. VALPROATE SODIUM [Concomitant]
  5. ZOLMITRIPTAN [Concomitant]
  6. CALAMINE/CAMPHOR/DIPHENHYDRAMINE (CALAMINE, CAMPHOR, DIPHENHYDRAMINE) [Concomitant]
  7. SERETIDE MITE (FLUTICASONE PROPIONATE, SALMETEROL XINAFOATE) [Concomitant]
  8. SALBUTAMOL [Concomitant]

REACTIONS (3)
  - CONVULSION [None]
  - FALL [None]
  - MOVEMENT DISORDER [None]
